FAERS Safety Report 8555131 (Version 3)
Quarter: 2012Q4

REPORT INFORMATION
  Report Type: Report from Study
  Country: DE (occurrence: DE)
  Receive Date: 20120510
  Receipt Date: 20121030
  Transmission Date: 20130627
  Serious: Yes (Other)
  Sender: FDA-Public Use
  Company Number: PHHY2012DE038744

PATIENT
  Sex: Female
  Weight: 80 kg

DRUGS (1)
  1. FTY 720 [Suspect]
     Dosage: 0.5 mg, QD
     Route: 048
     Dates: start: 20110503

REACTIONS (3)
  - Transient ischaemic attack [Recovered/Resolved]
  - Fall [Unknown]
  - Gait disturbance [Unknown]
